FAERS Safety Report 24853828 (Version 1)
Quarter: 2025Q1

REPORT INFORMATION
  Report Type: Spontaneous
  Country: CO (occurrence: CO)
  Receive Date: 20250117
  Receipt Date: 20250117
  Transmission Date: 20250409
  Serious: Yes (Other)
  Sender: NOVO NORDISK
  Company Number: CO-NOVOPROD-1349341

PATIENT
  Age: 55 Year
  Sex: Male
  Weight: 144 kg

DRUGS (1)
  1. OZEMPIC [Suspect]
     Active Substance: SEMAGLUTIDE
     Indication: Type 2 diabetes mellitus
     Dosage: 0.5 MG, QW
     Route: 058
     Dates: start: 202001

REACTIONS (6)
  - Renal neoplasm [Unknown]
  - Pain [Unknown]
  - Syncope [Unknown]
  - Carpal tunnel syndrome [Unknown]
  - Axillary nerve injury [Unknown]
  - Nausea [Unknown]

NARRATIVE: CASE EVENT DATE: 20211201
